FAERS Safety Report 9029919 (Version 1)
Quarter: 2013Q1

REPORT INFORMATION
  Report Type: Spontaneous
  Country: US (occurrence: US)
  Receive Date: 20130124
  Receipt Date: 20130124
  Transmission Date: 20140127
  Serious: Yes (Other)
  Sender: FDA-Public Use
  Company Number: US-WATSON-2013-00914

PATIENT
  Sex: Female

DRUGS (3)
  1. SODIUM CHLORIDE [Suspect]
     Indication: NUTRITIONAL SUPPLEMENTATION
     Dosage: UNK, UNKNOWN
     Route: 040
  2. POTASSIUM CHLORIDE [Suspect]
     Indication: HYPOKALAEMIA
     Dosage: UNK, UNKNOWN
     Route: 042
  3. GLUCOSE [Suspect]
     Indication: NUTRITIONAL SUPPLEMENTATION
     Dosage: UNK, UNKNOWN
     Route: 017

REACTIONS (7)
  - Blood phosphorus decreased [Recovered/Resolved]
  - Orthostatic hypotension [None]
  - Bradycardia [None]
  - Hypokalaemia [None]
  - Dental caries [None]
  - Gingivitis [None]
  - Tooth erosion [None]
